FAERS Safety Report 14798338 (Version 3)
Quarter: 2018Q2

REPORT INFORMATION
  Report Type: Spontaneous
  Country: US (occurrence: US)
  Receive Date: 20180424
  Receipt Date: 20180606
  Transmission Date: 20180711
  Serious: Yes (Other)
  Sender: FDA-Public Use
  Company Number: US-PFIZER INC-2018161150

PATIENT
  Age: 37 Year
  Sex: Male
  Weight: 81.63 kg

DRUGS (2)
  1. TESTOSTERONE CIPIONATE [Suspect]
     Active Substance: TESTOSTERONE
     Indication: HYPOGONADISM
     Dosage: 180 MG,EVERY 14 DAYS
     Route: 030
     Dates: start: 20171222
  2. TESTOSTERONE CIPIONATE [Suspect]
     Active Substance: TESTOSTERONE
     Dosage: UNK (6 VIALS)

REACTIONS (9)
  - Photophobia [Recovering/Resolving]
  - Insomnia [Recovering/Resolving]
  - Anticholinergic syndrome [Recovering/Resolving]
  - Headache [Recovering/Resolving]
  - Restlessness [Recovering/Resolving]
  - Neck pain [Recovering/Resolving]
  - Diarrhoea [Recovering/Resolving]
  - Tachyphrenia [Recovering/Resolving]
  - Anxiety [Unknown]

NARRATIVE: CASE EVENT DATE: 20180414
